FAERS Safety Report 10769313 (Version 1)
Quarter: 2015Q1

REPORT INFORMATION
  Report Type: Spontaneous
  Country: JP (occurrence: JP)
  Receive Date: 20150206
  Receipt Date: 20150206
  Transmission Date: 20150721
  Serious: Yes (Death)
  Sender: FDA-Public Use
  Company Number: JP-MALLINCKRODT-T201501020

PATIENT
  Age: 45 Year
  Sex: Male
  Weight: 64.4 kg

DRUGS (1)
  1. METHADONE [Suspect]
     Active Substance: METHADONE HYDROCHLORIDE
     Indication: CANCER PAIN
     Dosage: 10 MG (20 MG DAILY DOSE)
     Route: 048
     Dates: start: 20140912, end: 20141104

REACTIONS (1)
  - Bile duct cancer [Fatal]
